FAERS Safety Report 4576775-8 (Version None)
Quarter: 2005Q1

REPORT INFORMATION
  Report Type: 
  Country: None (occurrence: None)
  Receive Date: 20050207
  Receipt Date: 20050124
  Transmission Date: 20050727
  Serious: Yes (Other)
  Sender: FDA-Public Use
  Company Number: 2005021025

PATIENT
  Age: 59 Year
  Sex: Female
  Weight: 86.1834 kg

DRUGS (11)
  1. CELEBREX [Suspect]
     Indication: ARTHRALGIA
     Dosage: 200 MG (200 MG, 1 IN 1 D), ORAL
     Route: 048
     Dates: start: 20020101
  2. CHONDROITIN SULFATE (CHONDROITIN SULFATE) [Suspect]
     Indication: ILL-DEFINED DISORDER
     Dosage: 1200 MG (1 IN 1 D), ORAL
     Route: 048
  3. GLUCOSAMINE (GLUCOSAMINE) [Suspect]
     Indication: ILL-DEFINED DISORDER
     Dosage: 1500 MG, ORAL
     Route: 048
  4. METHYSULFONYLMETHANE (METHYLSULFONYLMETHANE) [Suspect]
     Indication: ILL-DEFINED DISORDER
     Dosage: 1500 MG, ORAL
     Route: 048
  5. RISEDRONATE SODIUM (RISEDRONATE SODIUM) [Suspect]
     Indication: PROPHYLAXIS
     Dosage: QWEEK, ORAL
     Route: 048
  6. CALCIUM CARBONATE (CALCIUM CARBONATE) [Suspect]
     Indication: PROPHYLAXIS
  7. SUMATRIPTAN SUCCINATE [Concomitant]
  8. PHRENILIN (BUTALBITAL, PARACETAMOL) [Concomitant]
  9. ESOMEPRAZOLE (ESOMEPRAZOLE) [Concomitant]
  10. NAPROXEN SODIUM [Concomitant]
  11. METAXALONE [Concomitant]

REACTIONS (10)
  - ABASIA [None]
  - ARTHRITIS [None]
  - CARPAL TUNNEL SYNDROME [None]
  - DRUG EFFECT DECREASED [None]
  - HAEMANGIOMA [None]
  - HYPERTENSION [None]
  - INTERVERTEBRAL DISC DEGENERATION [None]
  - INTERVERTEBRAL DISC PROTRUSION [None]
  - PAIN [None]
  - WHITE BLOOD CELL COUNT INCREASED [None]
